FAERS Safety Report 7182298-2 (Version None)
Quarter: 2010Q4

REPORT INFORMATION
  Report Type: 
  Country: None (occurrence: None)
  Receive Date: 20101221
  Receipt Date: 20100510
  Transmission Date: 20110411
  Serious: No
  Sender: FDA-Public Use
  Company Number: US-AMGEN-TCS411565

PATIENT

DRUGS (1)
  1. ENBREL [Suspect]
     Indication: RHEUMATOID ARTHRITIS
     Dosage: 50 MG, 2 TIMES/WK
     Dates: start: 20080101

REACTIONS (5)
  - EXPIRED DRUG ADMINISTERED [None]
  - FEELING HOT [None]
  - FLUSHING [None]
  - RASH [None]
  - RHEUMATOID ARTHRITIS [None]
